FAERS Safety Report 5928312-0 (Version None)
Quarter: 2008Q4

REPORT INFORMATION
  Report Type: 
  Country: None (occurrence: None)
  Receive Date: 20081020
  Receipt Date: 20081009
  Transmission Date: 20090506
  Serious: Yes (Disabling)
  Sender: FDA-Public Use
  Company Number: 2008-03829

PATIENT
  Age: 65 Year
  Sex: Female

DRUGS (7)
  1. VELCADE [Suspect]
     Indication: MULTIPLE MYELOMA
     Dosage: 2MG, INTRAVENOUS
     Route: 042
     Dates: start: 20080704, end: 20080912
  2. BISOPROLOL FUMARATE [Concomitant]
  3. AMLODIPINE [Concomitant]
  4. BONEFOS (CLODRONATE DISODIUM) [Concomitant]
  5. OMEPRAZOLE [Concomitant]
  6. OXYCONTIN [Concomitant]
  7. NEBUPENT (PENTAMINE ISETHIONATE) [Concomitant]

REACTIONS (2)
  - BLEPHARITIS [None]
  - HORDEOLUM [None]
